FAERS Safety Report 18178697 (Version 1)
Quarter: 2020Q3

REPORT INFORMATION
  Report Type: Spontaneous
  Country: US (occurrence: US)
  Receive Date: 20200821
  Receipt Date: 20200821
  Transmission Date: 20201103
  Serious: No
  Sender: FDA-Public Use
  Company Number: US-SA-2019SA119815

PATIENT

DRUGS (2)
  1. LANTUS [Suspect]
     Active Substance: INSULIN GLARGINE
     Dosage: DECREASED HIS DOSE TO 5 AND THEN NOTHING, WHEN HE STARTED TO EAT AGAIN SHE TITRATED IT UP BY 5 UNITS
     Route: 065
     Dates: start: 20150814
  2. LANTUS [Suspect]
     Active Substance: INSULIN GLARGINE
     Indication: TYPE 2 DIABETES MELLITUS
     Dosage: 20 IU, ONCE A DAY
     Route: 065

REACTIONS (2)
  - Cardiac pacemaker replacement [Unknown]
  - Intentional product use issue [Unknown]
